FAERS Safety Report 4490215-9 (Version None)
Quarter: 2004Q4

REPORT INFORMATION
  Report Type: 
  Country: None (occurrence: None)
  Receive Date: 20041027
  Receipt Date: 20041019
  Transmission Date: 20050328
  Serious: Yes (Other)
  Sender: FDA-Public Use
  Company Number: CIP04002232

PATIENT
  Sex: Female
  Weight: 3.9 kg

DRUGS (2)
  1. ASACOL [Suspect]
     Indication: CROHN'S DISEASE
     Dosage: TRANSPLACENTAL
     Route: 064
  2. PREDNISOLONE [Concomitant]

REACTIONS (4)
  - CHORIOAMNIONITIS [None]
  - MATERNAL DRUGS AFFECTING FOETUS [None]
  - THROMBOSED VARICOSE VEIN [None]
  - UMBILICAL CORD VASCULAR DISORDER [None]
